FAERS Safety Report 7645359-7 (Version None)
Quarter: 2011Q3

REPORT INFORMATION
  Report Type: 
  Country: None (occurrence: None)
  Receive Date: 20110729
  Receipt Date: 20110719
  Transmission Date: 20111222
  Serious: Yes (Hospitalization, Other)
  Sender: FDA-Public Use
  Company Number: US-BAYER-2011-061226

PATIENT
  Age: 35 Year
  Sex: Female
  Weight: 65.76 kg

DRUGS (8)
  1. AVELOX [Concomitant]
     Dosage: 400 MG, QD
     Route: 048
     Dates: start: 20090703
  2. YAZ [Suspect]
     Indication: ORAL CONTRACEPTION
     Dosage: UNK
     Dates: start: 20081201, end: 20090728
  3. YAZ [Suspect]
     Indication: ACNE
  4. METOPROLOL TARTRATE [Concomitant]
  5. DARVOCET-N 50 [Concomitant]
     Dosage: UNK
     Dates: start: 20090703
  6. OXYCODONE HYDROCHLORIDE [Concomitant]
     Dosage: 5 MG, ?-2 TABLETS
     Route: 048
     Dates: start: 20090703
  7. TRAZODONE HCL [Concomitant]
     Dosage: AS NEEDED
     Route: 048
  8. HYDROCHLOROTHIAZIDE [Concomitant]

REACTIONS (8)
  - PULMONARY EMBOLISM [None]
  - MUSCULOSKELETAL PAIN [None]
  - ANXIETY [None]
  - PSYCHIATRIC SYMPTOM [None]
  - INJURY [None]
  - CHEST PAIN [None]
  - PAIN [None]
  - EMOTIONAL DISTRESS [None]
